FAERS Safety Report 6376175-4 (Version None)
Quarter: 2009Q3

REPORT INFORMATION
  Report Type: 
  Country: None (occurrence: None)
  Receive Date: 20090921
  Receipt Date: 20090908
  Transmission Date: 20100115
  Serious: Yes (Death)
  Sender: FDA-Public Use
  Company Number: CLOF-1000622

PATIENT
  Age: 61 Year
  Sex: Female

DRUGS (14)
  1. EVOLTRA (CLOFARABINE) SOLUTION FOR INFUSION [Suspect]
     Indication: ACUTE MYELOID LEUKAEMIA
     Dosage: INTRAVENOUS; 38 MG, QDX5, INTRAVENOUS
     Route: 042
     Dates: start: 20090513, end: 20090501
  2. EVOLTRA (CLOFARABINE) SOLUTION FOR INFUSION [Suspect]
     Indication: ACUTE MYELOID LEUKAEMIA
     Dosage: INTRAVENOUS; 38 MG, QDX5, INTRAVENOUS
     Route: 042
     Dates: start: 20090627, end: 20090701
  3. DAUNORUBICIN HCL [Suspect]
     Indication: ACUTE MYELOID LEUKAEMIA
     Dosage: INTRAVENOUS
     Route: 042
     Dates: start: 20090513, end: 20090501
  4. DAUNORUBICIN HCL [Suspect]
     Indication: ACUTE MYELOID LEUKAEMIA
     Dosage: INTRAVENOUS
     Route: 042
     Dates: start: 20090627, end: 20090701
  5. ONDANSETRON (ONDANSETRON) UNKNOWN [Concomitant]
  6. OMEPRAZOL (OMEPRAZOLE) UNKNOWN [Concomitant]
  7. DOMPERIDONE (DOMPERIDONE) UNKNOWN [Concomitant]
  8. NYSTATIN (NYSTATIN) UNKNOWN [Concomitant]
  9. ETHINYLESTRADIOL (ETHINYLESTRADIOL, NORGESTREL) UNKNOWN [Concomitant]
  10. DOCUSATE SODIUM (DOCUSATE SODIUM) UNKNOWN [Concomitant]
  11. BISACODYL (BISACODYL) UNKNOWN [Concomitant]
  12. LEVOMEPROMAZINE (LEVOMEPROMAZINE MALEATE) UNKNOWN [Concomitant]
  13. VITAMIN K (VITAMIN K NOS) UNKNOWN [Concomitant]
  14. TRANEXAMIC ACID (TRANEXAMIC ACID) UNKNOWN [Concomitant]

REACTIONS (21)
  - ABDOMINAL PAIN [None]
  - ASPARTATE AMINOTRANSFERASE INCREASED [None]
  - ATRIAL FIBRILLATION [None]
  - BLOOD GLUCOSE INCREASED [None]
  - BLOOD LACTATE DEHYDROGENASE INCREASED [None]
  - BLOOD MAGNESIUM DECREASED [None]
  - BLOOD PRESSURE SYSTOLIC INCREASED [None]
  - BODY TEMPERATURE INCREASED [None]
  - DIALYSIS [None]
  - EFFUSION [None]
  - FLUID OVERLOAD [None]
  - GAMMA-GLUTAMYLTRANSFERASE INCREASED [None]
  - GENERAL PHYSICAL HEALTH DETERIORATION [None]
  - HEPATIC FUNCTION ABNORMAL [None]
  - HYPOTENSION [None]
  - MULTI-ORGAN FAILURE [None]
  - PAIN IN EXTREMITY [None]
  - PARAESTHESIA [None]
  - REFUSAL OF TREATMENT BY PATIENT [None]
  - RENAL FAILURE [None]
  - SEPSIS [None]
